FAERS Safety Report 6642823-4 (Version None)
Quarter: 2010Q1

REPORT INFORMATION
  Report Type: 
  Country: None (occurrence: None)
  Receive Date: 20100316
  Receipt Date: 20100302
  Transmission Date: 20100710
  Serious: Yes (Hospitalization)
  Sender: FDA-Public Use
  Company Number: 220004J10CAN

PATIENT
  Age: 43 Year
  Sex: Female

DRUGS (1)
  1. SAIZEN [Suspect]
     Indication: OFF LABEL USE
     Dosage: 0.3 MG, 1 IN 1 DAYS
     Dates: start: 20081216

REACTIONS (2)
  - HERNIA REPAIR [None]
  - OFF LABEL USE [None]
